FAERS Safety Report 9842246 (Version 1)
Quarter: 2014Q1

REPORT INFORMATION
  Report Type: Spontaneous
  Country: JP (occurrence: JP)
  Receive Date: 20140124
  Receipt Date: 20140124
  Transmission Date: 20141002
  Serious: Yes (Other)
  Sender: FDA-Public Use
  Company Number: JP-GLAXOSMITHKLINE-B0962872A

PATIENT
  Sex: 0

DRUGS (2)
  1. ZEFIX 100 [Suspect]
     Indication: PROPHYLAXIS
     Route: 064
  2. HUMAN NORMAL IMMUNOGLOBULIN [Suspect]
     Indication: PROPHYLAXIS
     Route: 064

REACTIONS (3)
  - Foetal disorder [Unknown]
  - Low birth weight baby [Unknown]
  - Foetal exposure during pregnancy [Unknown]
